FAERS Safety Report 12943015 (Version 1)
Quarter: 2016Q4

REPORT INFORMATION
  Report Type: Spontaneous
  Country: US (occurrence: US)
  Receive Date: 20161115
  Receipt Date: 20161115
  Transmission Date: 20170207
  Serious: No
  Sender: FDA-Public Use
  Company Number: US-009507513-1611USA001814

PATIENT

DRUGS (7)
  1. PARITAPREVIR [Suspect]
     Active Substance: PARITAPREVIR
     Indication: CHRONIC HEPATITIS C
     Dosage: UNK
     Route: 048
  2. RIBAVIRIN. [Suspect]
     Active Substance: RIBAVIRIN
     Indication: CHRONIC HEPATITIS C
     Dosage: UNK
     Route: 048
  3. DASABUVIR [Suspect]
     Active Substance: DASABUVIR
     Indication: CHRONIC HEPATITIS C
     Dosage: UNK
     Route: 048
  4. TACROLIMUS. [Concomitant]
     Active Substance: TACROLIMUS
  5. RITONAVIR. [Suspect]
     Active Substance: RITONAVIR
     Indication: CHRONIC HEPATITIS C
     Dosage: UNK
     Route: 048
  6. OMBITASVIR [Suspect]
     Active Substance: OMBITASVIR
     Indication: CHRONIC HEPATITIS C
     Dosage: UNK
     Route: 048
  7. CYCLOSPORINE. [Concomitant]
     Active Substance: CYCLOSPORINE

REACTIONS (1)
  - Fatigue [Unknown]
